APPROVED DRUG PRODUCT: ESGIC
Active Ingredient: ACETAMINOPHEN; BUTALBITAL; CAFFEINE
Strength: 325MG;50MG;40MG
Dosage Form/Route: TABLET;ORAL
Application: A089660 | Product #001
Applicant: FOREST PHARMACEUTICALS INC
Approved: Dec 23, 1988 | RLD: No | RS: No | Type: DISCN